FAERS Safety Report 12405140 (Version 2)
Quarter: 2016Q2

REPORT INFORMATION
  Report Type: Spontaneous
  Country: JP (occurrence: JP)
  Receive Date: 20160525
  Receipt Date: 20160606
  Transmission Date: 20160815
  Serious: Yes (Hospitalization)
  Sender: FDA-Public Use
  Company Number: JP-PURDUE PHARMA-GBR-2016-0036524

PATIENT
  Age: 74 Year
  Sex: Male
  Weight: 67.3 kg

DRUGS (8)
  1. NORSPAN [Suspect]
     Active Substance: BUPRENORPHINE
     Indication: SCIATICA
     Dosage: 5 MCG, Q1H
     Route: 062
     Dates: start: 20160423, end: 20160430
  2. PRIMPERAN [Concomitant]
     Active Substance: METOCLOPRAMIDE HYDROCHLORIDE
     Indication: PROPHYLAXIS OF NAUSEA AND VOMITING
     Dosage: 3 DF, DAILY
     Route: 048
     Dates: start: 20160423, end: 20160501
  3. LYRICA [Concomitant]
     Active Substance: PREGABALIN
     Indication: NEURALGIA
     Dosage: 50 MG, DAILY
     Route: 048
     Dates: start: 20160423, end: 20160430
  4. DIAZEPAM. [Concomitant]
     Active Substance: DIAZEPAM
     Indication: SCIATICA
     Dosage: 4 MG, DAILY
     Route: 048
     Dates: start: 20120119, end: 20160501
  5. TEPRENONE [Concomitant]
     Active Substance: TEPRENONE
     Indication: PROPHYLAXIS
     Dosage: 1 G, DAILY
     Route: 048
     Dates: start: 20120119, end: 20160501
  6. MAGNESIUM OXIDE. [Concomitant]
     Active Substance: MAGNESIUM OXIDE
     Indication: CONSTIPATION PROPHYLAXIS
     Dosage: 1.5 G, DAILY
     Route: 048
     Dates: start: 20160423, end: 20160501
  7. PURSENNID                          /00142207/ [Concomitant]
     Active Substance: SENNOSIDES A AND B
     Indication: CONSTIPATION
     Dosage: 24 MG, DAILY
     Route: 048
     Dates: start: 20160430, end: 20160501
  8. LOBU [Concomitant]
     Active Substance: LOBUCAVIR
     Indication: SCIATICA
     Dosage: 120 MG, DAILY
     Route: 048
     Dates: start: 20120119, end: 20160501

REACTIONS (2)
  - Colitis ischaemic [Recovered/Resolved]
  - Constipation [Recovered/Resolved]

NARRATIVE: CASE EVENT DATE: 20160430
